FAERS Safety Report 14545474 (Version 2)
Quarter: 2018Q1

REPORT INFORMATION
  Report Type: Report from Study
  Country: MX (occurrence: MX)
  Receive Date: 20180219
  Receipt Date: 20180312
  Transmission Date: 20180509
  Serious: Yes (Hospitalization, Other)
  Sender: FDA-Public Use
  Company Number: PHHY2018MX023880

PATIENT
  Age: 76 Year
  Sex: Female

DRUGS (1)
  1. EXFORGE [Suspect]
     Active Substance: AMLODIPINE BESYLATE\VALSARTAN
     Indication: HYPERTENSION
     Dosage: 1 DF (AMLODIPINE 10 MG, VALSARTAN 320 MG), QD
     Route: 048
     Dates: start: 2009

REACTIONS (3)
  - Hypophagia [Recovered/Resolved]
  - Cerebral disorder [Recovered/Resolved with Sequelae]
  - Renal disorder [Recovered/Resolved]

NARRATIVE: CASE EVENT DATE: 2016
